FAERS Safety Report 6635551-2 (Version None)
Quarter: 2010Q1

REPORT INFORMATION
  Report Type: 
  Country: None (occurrence: None)
  Receive Date: 20100315
  Receipt Date: 20091216
  Transmission Date: 20100710
  Serious: No
  Sender: FDA-Public Use
  Company Number: US-ABBOTT-09P-163-0615614-00

PATIENT
  Sex: Female
  Weight: 52.21 kg

DRUGS (2)
  1. DEPAKOTE [Suspect]
     Indication: ANXIETY
     Dates: start: 20091209
  2. HALDOL [Concomitant]
     Indication: ANXIETY
     Dates: start: 20091129, end: 20091129

REACTIONS (4)
  - DECREASED APPETITE [None]
  - FATIGUE [None]
  - SOMNOLENCE [None]
  - SPEECH DISORDER [None]
